FAERS Safety Report 5954015-2 (Version None)
Quarter: 2008Q4

REPORT INFORMATION
  Report Type: 
  Country: None (occurrence: None)
  Receive Date: 20081114
  Receipt Date: 20081027
  Transmission Date: 20090506
  Serious: Yes (Other)
  Sender: FDA-Public Use
  Company Number: US-PFIZER INC-2008094610

PATIENT
  Age: 47 Year
  Sex: Male

DRUGS (11)
  1. NELFINAVIR MESILATE [Suspect]
     Indication: HIV INFECTION
  2. STAVUDINE [Suspect]
     Indication: HIV INFECTION
  3. DIDANOSINE [Suspect]
     Indication: HIV INFECTION
  4. TENOFOVIR [Suspect]
     Indication: HIV INFECTION
  5. NEVIRAPINE [Suspect]
     Indication: HIV INFECTION
  6. EFAVIRENZ [Suspect]
     Indication: HIV INFECTION
  7. GALENIC /LOPINAVIR/RITONAVIR/ [Suspect]
     Indication: HIV INFECTION
  8. AMPRENAVIR [Suspect]
     Indication: HIV INFECTION
  9. RITONAVIR [Suspect]
  10. HYDROXYUREA [Suspect]
     Indication: HIV INFECTION
  11. TAMOXIFEN [Concomitant]

REACTIONS (8)
  - DEPRESSION [None]
  - EYELID PTOSIS [None]
  - GYNAECOMASTIA [None]
  - HEPATIC ENCEPHALOPATHY [None]
  - HEPATIC STEATOSIS [None]
  - LIPODYSTROPHY ACQUIRED [None]
  - NEUROPATHY PERIPHERAL [None]
  - OPHTHALMOPLEGIA [None]
